FAERS Safety Report 12714601 (Version 1)
Quarter: 2016Q3

REPORT INFORMATION
  Report Type: Spontaneous
  Country: CN (occurrence: CN)
  Receive Date: 20160905
  Receipt Date: 20160905
  Transmission Date: 20161109
  Serious: Yes (Death, Other)
  Sender: FDA-Public Use
  Company Number: CN-JNJFOC-20160822222

PATIENT

DRUGS (4)
  1. BORTEZOMIB [Suspect]
     Active Substance: BORTEZOMIB
     Indication: PLASMA CELL MYELOMA
     Route: 065
  2. DOXORUBICIN [Suspect]
     Active Substance: DOXORUBICIN
     Indication: PLASMA CELL MYELOMA
     Route: 065
  3. DEXAMETHASONE. [Suspect]
     Active Substance: DEXAMETHASONE
     Indication: PLASMA CELL MYELOMA
     Route: 065
  4. THALIDOMIDE [Suspect]
     Active Substance: THALIDOMIDE
     Indication: PLASMA CELL MYELOMA
     Route: 065

REACTIONS (13)
  - Renal failure [Fatal]
  - Leukopenia [Unknown]
  - Diarrhoea [Unknown]
  - Cardiac disorder [Unknown]
  - Haematotoxicity [Unknown]
  - Acute myocardial infarction [Unknown]
  - Infection [Fatal]
  - Hepatic function abnormal [Unknown]
  - Sinus bradycardia [Unknown]
  - Fatigue [Unknown]
  - Plasma cell myeloma [Fatal]
  - Thrombocytopenia [Unknown]
  - Neuropathy peripheral [Unknown]
